FAERS Safety Report 8069505-9 (Version None)
Quarter: 2012Q1

REPORT INFORMATION
  Report Type: 
  Country: None (occurrence: None)
  Receive Date: 20120125
  Receipt Date: 20120117
  Transmission Date: 20120608
  Serious: Yes (Other)
  Sender: FDA-Public Use
  Company Number: US-JNJFOC-20120107515

PATIENT
  Age: 13 Year

DRUGS (3)
  1. REMICADE [Suspect]
     Indication: CROHN'S DISEASE
     Route: 042
  2. REMICADE [Suspect]
     Route: 042
  3. METHOTREXATE [Concomitant]
     Route: 065

REACTIONS (4)
  - TACHYCARDIA [None]
  - TACHYPNOEA [None]
  - URTICARIA [None]
  - BACK PAIN [None]
